FAERS Safety Report 20200248 (Version 6)
Quarter: 2025Q1

REPORT INFORMATION
  Report Type: Spontaneous
  Country: US (occurrence: US)
  Receive Date: 20211217
  Receipt Date: 20250110
  Transmission Date: 20250408
  Serious: No
  Sender: PFIZER
  Company Number: US-PFIZER INC-2021907663

PATIENT
  Age: 80 Year
  Sex: Female
  Weight: 72.562 kg

DRUGS (12)
  1. IBRANCE [Suspect]
     Active Substance: PALBOCICLIB
     Indication: Breast cancer female
     Route: 048
     Dates: start: 20210703
  2. IBRANCE [Suspect]
     Active Substance: PALBOCICLIB
     Indication: Breast cancer metastatic
     Route: 048
     Dates: start: 20210703, end: 20210827
  3. IBRANCE [Suspect]
     Active Substance: PALBOCICLIB
     Indication: Metastases to bone
     Route: 048
     Dates: start: 20210703
  4. IBRANCE [Suspect]
     Active Substance: PALBOCICLIB
     Dosage: 75 MG, 1X/DAY
     Route: 048
  5. IBRANCE [Suspect]
     Active Substance: PALBOCICLIB
  6. TRAZODONE [Concomitant]
     Active Substance: TRAZODONE HYDROCHLORIDE
  7. ONDANSETRON HYDROCHLORIDE [Concomitant]
     Active Substance: ONDANSETRON HYDROCHLORIDE
  8. ALBUTEROL SULFATE [Concomitant]
     Active Substance: ALBUTEROL SULFATE
  9. LEVOFLOXACIN [Concomitant]
     Active Substance: LEVOFLOXACIN
  10. ANASTROZOLE [Concomitant]
     Active Substance: ANASTROZOLE
  11. PREDNISONE [Concomitant]
     Active Substance: PREDNISONE
  12. FAMOTIDINE [Concomitant]
     Active Substance: FAMOTIDINE

REACTIONS (3)
  - Diarrhoea [Recovered/Resolved]
  - Hot flush [Unknown]
  - Product prescribing issue [Unknown]
